FAERS Safety Report 19133225 (Version 1)
Quarter: 2021Q2

REPORT INFORMATION
  Report Type: Report from Study
  Country: US (occurrence: US)
  Receive Date: 20210413
  Receipt Date: 20210413
  Transmission Date: 20210717
  Serious: Yes (Hospitalization)
  Sender: FDA-Public Use
  Company Number: US-TAIHO ONCOLOGY  INC-EU-2021-00906

PATIENT
  Age: 77 Year
  Sex: Male

DRUGS (14)
  1. OMEPRAZOLE. [Concomitant]
     Active Substance: OMEPRAZOLE
  2. LIPITOR [Concomitant]
     Active Substance: ATORVASTATIN CALCIUM
  3. GABAPENTIN. [Concomitant]
     Active Substance: GABAPENTIN
  4. ATENOLOL. [Concomitant]
     Active Substance: ATENOLOL
  5. NEULASTA [Concomitant]
     Active Substance: PEGFILGRASTIM
  6. PREDNISONE. [Concomitant]
     Active Substance: PREDNISONE
  7. FISH OIL [Concomitant]
     Active Substance: FISH OIL
  8. LEVOTHYROXIN [Concomitant]
     Active Substance: LEVOTHYROXINE
  9. LONSURF [Suspect]
     Active Substance: TIPIRACIL HYDROCHLORIDE\TRIFLURIDINE
     Indication: COLON CANCER
     Dosage: CURRENT CYCLE UNKNOWN
     Route: 048
     Dates: start: 20191004
  10. MULTIPLE VIT [Concomitant]
  11. ATORVASTATIN [Concomitant]
     Active Substance: ATORVASTATIN
  12. BACLOFEN. [Concomitant]
     Active Substance: BACLOFEN
  13. ASPIRIN. [Concomitant]
     Active Substance: ASPIRIN
  14. BENADRYL [Concomitant]
     Active Substance: DIPHENHYDRAMINE HYDROCHLORIDE

REACTIONS (1)
  - Gallbladder operation [Not Recovered/Not Resolved]
